FAERS Safety Report 5771154-X (Version None)
Quarter: 2008Q2

REPORT INFORMATION
  Report Type: 
  Country: None (occurrence: None)
  Receive Date: 20080613
  Receipt Date: 20080530
  Transmission Date: 20081010
  Serious: No
  Sender: FDA-Public Use
  Company Number: US-ABBOTT-08P-163-0454303-00

PATIENT
  Sex: Male
  Weight: 78.542 kg

DRUGS (1)
  1. HUMIRA [Suspect]
     Indication: PSORIATIC ARTHROPATHY
     Dates: start: 20080509

REACTIONS (3)
  - ABNORMAL SENSATION IN EYE [None]
  - HEADACHE [None]
  - PARAESTHESIA [None]
